FAERS Safety Report 9025241 (Version 1)
Quarter: 2013Q1

REPORT INFORMATION
  Report Type: Spontaneous
  Country: SE (occurrence: SE)
  Receive Date: 20130122
  Receipt Date: 20130122
  Transmission Date: 20140127
  Serious: Yes (Hospitalization)
  Sender: FDA-Public Use
  Company Number: SE-ROCHE-1181611

PATIENT
  Age: 83 Year
  Sex: Male

DRUGS (1)
  1. LUCENTIS [Suspect]
     Indication: MACULAR OEDEMA
     Dosage: 10 MG/ML
     Route: 050
     Dates: start: 20120604, end: 20120813

REACTIONS (1)
  - Cerebral infarction [Unknown]
